FAERS Safety Report 7194220-3 (Version None)
Quarter: 2010Q4

REPORT INFORMATION
  Report Type: 
  Country: None (occurrence: None)
  Receive Date: 20101223
  Receipt Date: 20101221
  Transmission Date: 20110411
  Serious: Yes (Other)
  Sender: FDA-Public Use
  Company Number: US-AMGEN-USASP2010010776

PATIENT

DRUGS (3)
  1. NPLATE [Suspect]
     Indication: THROMBOCYTOPENIC PURPURA
     Dates: start: 20101101
  2. PREDNISONE [Concomitant]
     Dosage: 10 MG, UNK
  3. CLONAZEPAM [Concomitant]
     Indication: SLEEP DISORDER
     Dosage: UNK
     Dates: start: 20101101

REACTIONS (1)
  - HYPOAESTHESIA [None]
